FAERS Safety Report 10900286 (Version 1)
Quarter: 2015Q1

REPORT INFORMATION
  Report Type: Spontaneous
  Country: BY (occurrence: BY)
  Receive Date: 20150310
  Receipt Date: 20150310
  Transmission Date: 20150721
  Serious: Yes (Death, Life-Threatening)
  Sender: FDA-Public Use
  Company Number: BY-ROCHE-1546726

PATIENT
  Age: 63 Year
  Sex: Male

DRUGS (5)
  1. TENECTEPLASE [Suspect]
     Active Substance: TENECTEPLASE
     Indication: MYOCARDIAL INFARCTION
     Route: 065
     Dates: start: 20150222, end: 20150222
  2. HEPARIN [Suspect]
     Active Substance: HEPARIN SODIUM
     Indication: MYOCARDIAL INFARCTION
     Route: 042
     Dates: start: 20150222
  3. NITROGLYCERIN. [Concomitant]
     Active Substance: NITROGLYCERIN
     Indication: MYOCARDIAL INFARCTION
     Route: 065
     Dates: start: 20150222
  4. CLOPIDOGREL [Suspect]
     Active Substance: CLOPIDOGREL BISULFATE
     Indication: MYOCARDIAL INFARCTION
     Route: 065
     Dates: start: 20150222
  5. PHENYLEPHRINE [Concomitant]
     Active Substance: PHENYLEPHRINE\PHENYLEPHRINE HYDROCHLORIDE
     Indication: HYPERTENSION
     Route: 042
     Dates: start: 20150222

REACTIONS (3)
  - Loss of consciousness [Fatal]
  - Cerebral haemorrhage [Fatal]
  - Bradycardia [Unknown]

NARRATIVE: CASE EVENT DATE: 20150222
